FAERS Safety Report 10426152 (Version 1)
Quarter: 2014Q3

REPORT INFORMATION
  Report Type: Spontaneous
  Country: US (occurrence: None)
  Receive Date: 20140725
  Receipt Date: 20140725
  Transmission Date: 20150326
  Serious: No
  Sender: FDA-Public Use
  Company Number: AP356-00630-SPO-US

PATIENT
  Age: 60 Year
  Sex: Female
  Weight: 104.5 kg

DRUGS (3)
  1. ZYTREC (CETIRIZINE HYDROCHLORIDE) [Concomitant]
  2. ALLEGRA [Concomitant]
     Active Substance: FEXOFENADINE HYDROCHLORIDE
  3. BELVIQ [Suspect]
     Active Substance: LORCASERIN HYDROCHLORIDE
     Indication: WEIGHT DECREASED
     Dosage: 2 IN 1 D
     Route: 048
     Dates: start: 20140411

REACTIONS (1)
  - Weight increased [None]

NARRATIVE: CASE EVENT DATE: 20140412
